FAERS Safety Report 9600023 (Version 1)
Quarter: 2013Q4

REPORT INFORMATION
  Report Type: Spontaneous
  Country: US (occurrence: US)
  Receive Date: 20131004
  Receipt Date: 20131004
  Transmission Date: 20140711
  Serious: No
  Sender: FDA-Public Use
  Company Number: US-AMGEN-USASP2013031961

PATIENT
  Age: 71 Year
  Sex: Male
  Weight: 65.76 kg

DRUGS (6)
  1. ENBREL [Suspect]
     Indication: PRODUCT USED FOR UNKNOWN INDICATION
     Dosage: 50 MG, QWK
     Route: 058
  2. CITRACAL PLUS [Concomitant]
     Dosage: UNK
  3. MELOXICAM [Concomitant]
     Dosage: 15 MG, UNK
  4. PREDNISONE [Concomitant]
     Dosage: 1 MG, UNK
  5. MULTIVITAMIN                       /00097801/ [Concomitant]
     Dosage: UNK
  6. LOSARTAN/HCT [Concomitant]
     Dosage: 100-25

REACTIONS (1)
  - Injection site erythema [Unknown]
